FAERS Safety Report 23637441 (Version 1)
Quarter: 2024Q1

REPORT INFORMATION
  Report Type: Report from Study
  Country: IT (occurrence: IT)
  Receive Date: 20240315
  Receipt Date: 20240315
  Transmission Date: 20240410
  Serious: Yes (Hospitalization)
  Sender: FDA-Public Use
  Company Number: IT-ABBVIE-5678993

PATIENT
  Age: 53 Year
  Sex: Male

DRUGS (4)
  1. RISANKIZUMAB [Suspect]
     Active Substance: RISANKIZUMAB
     Indication: Psoriasis
     Dosage: 150 MILLIGRAM?FREQUENCY TEXT: PER MONTH
     Route: 058
     Dates: start: 20211028, end: 20211125
  2. RISANKIZUMAB [Suspect]
     Active Substance: RISANKIZUMAB
     Dosage: 150 MILLIGRAM?FREQUENCY TEXT: PER 3 MONTHS
     Route: 058
     Dates: start: 20211125
  3. ASTRAZENECA COVID-19 VACCINE [Concomitant]
     Active Substance: AZD-1222
     Indication: COVID-19 immunisation
     Dosage: 0,30 ML?FREQUENCY TEXT: 5 MONTHS AFTER THE SECOND DOSE
     Route: 030
     Dates: start: 20211220, end: 20211220
  4. OLMESARTAN MEDOXOMIL [Concomitant]
     Active Substance: OLMESARTAN MEDOXOMIL
     Indication: Hypertension
     Dosage: 20 MILLIGRAM?FREQUENCY TEXT: DAILY
     Route: 048
     Dates: start: 20160901

REACTIONS (1)
  - Arteriosclerosis coronary artery [Recovered/Resolved]

NARRATIVE: CASE EVENT DATE: 20240308
